FAERS Safety Report 22898248 (Version 2)
Quarter: 2024Q1

REPORT INFORMATION
  Report Type: Report from Study
  Country: US (occurrence: US)
  Receive Date: 20230903
  Receipt Date: 20240107
  Transmission Date: 20240409
  Serious: Yes (Hospitalization, Other)
  Sender: FDA-Public Use
  Company Number: US-ABBVIE-5390680

PATIENT
  Age: 45 Year
  Sex: Female
  Weight: 67 kg

DRUGS (4)
  1. BOTOX [Suspect]
     Active Substance: ONABOTULINUMTOXINA
     Indication: Migraine
     Dosage: TIME INTERVAL: AS NECESSARY: 170 UNIT
     Route: 065
     Dates: start: 20181211, end: 20181211
  2. GABAPENTIN [Concomitant]
     Active Substance: GABAPENTIN
     Indication: Product used for unknown indication
  3. MAXALT [Concomitant]
     Active Substance: RIZATRIPTAN BENZOATE
     Indication: Product used for unknown indication
  4. RUBRACA [Concomitant]
     Active Substance: RUCAPARIB CAMSYLATE
     Indication: Product used for unknown indication

REACTIONS (11)
  - Ovarian cancer stage IV [Unknown]
  - Sepsis [Unknown]
  - Neuropathy peripheral [Unknown]
  - Fungal infection [Unknown]
  - Shoulder operation [Unknown]
  - Mastectomy [Unknown]
  - Cognitive disorder [Unknown]
  - Therapeutic response shortened [Recovered/Resolved]
  - Hospitalisation [Unknown]
  - Migraine [Unknown]
  - Meningitis fungal [Unknown]

NARRATIVE: CASE EVENT DATE: 20190301
